FAERS Safety Report 14766343 (Version 1)
Quarter: 2018Q2

REPORT INFORMATION
  Report Type: Report from Study
  Country: IL (occurrence: IL)
  Receive Date: 20180416
  Receipt Date: 20180416
  Transmission Date: 20180711
  Serious: Yes (Hospitalization)
  Sender: FDA-Public Use
  Company Number: PHHY2018IL047844

PATIENT
  Age: 62 Year
  Sex: Female

DRUGS (2)
  1. RECLAST [Suspect]
     Active Substance: ZOLEDRONIC ACID
     Indication: PRODUCT USED FOR UNKNOWN INDICATION
     Dosage: UNK
     Route: 065
  2. AFINITOR [Suspect]
     Active Substance: EVEROLIMUS
     Indication: BREAST CANCER
     Dosage: 10 MG, QD
     Route: 048
     Dates: start: 20180309, end: 20180319

REACTIONS (13)
  - Dizziness [Not Recovered/Not Resolved]
  - Facial pain [Recovering/Resolving]
  - Drug ineffective [Unknown]
  - Blood potassium decreased [Unknown]
  - Swelling [Recovering/Resolving]
  - Dyskinesia [Unknown]
  - Noninfective sialoadenitis [Unknown]
  - Sepsis [Unknown]
  - Myocardial infarction [Unknown]
  - Pulmonary oedema [Recovered/Resolved]
  - Dyspnoea [Not Recovered/Not Resolved]
  - Cardiac disorder [Unknown]
  - Troponin increased [Unknown]

NARRATIVE: CASE EVENT DATE: 20180313
